FAERS Safety Report 24688545 (Version 1)
Quarter: 2024Q4

REPORT INFORMATION
  Report Type: Spontaneous
  Country: US (occurrence: US)
  Receive Date: 20241202
  Receipt Date: 20241202
  Transmission Date: 20250114
  Serious: Yes (Other)
  Sender: ENDO
  Company Number: US-ENDO USA, INC.-2024-050768

PATIENT
  Age: 68 Year
  Sex: Male

DRUGS (1)
  1. MIDODRINE HYDROCHLORIDE [Suspect]
     Active Substance: MIDODRINE HYDROCHLORIDE
     Indication: Hypotension
     Dosage: 10 MILLIGRAM, TID
     Route: 065

REACTIONS (4)
  - Peripheral ischaemia [Unknown]
  - Vascular injury [Unknown]
  - Gangrene [Unknown]
  - Ankle brachial index decreased [Unknown]
